FAERS Safety Report 19377178 (Version 1)
Quarter: 2021Q2

REPORT INFORMATION
  Report Type: Spontaneous
  Country: RU (occurrence: RU)
  Receive Date: 20210604
  Receipt Date: 20210604
  Transmission Date: 20210717
  Serious: Yes (Death, Other)
  Sender: FDA-Public Use
  Company Number: RU-PFIZER INC-2021590486

PATIENT
  Age: 27 Year
  Sex: Male

DRUGS (1)
  1. INOTUZUMAB OZOGAMICIN [Suspect]
     Active Substance: INOTUZUMAB OZOGAMICIN
     Indication: ACUTE LYMPHOCYTIC LEUKAEMIA
     Dosage: UNK, CYCLIC: ONE CYCLE
     Dates: start: 20170526, end: 20170614

REACTIONS (5)
  - Meningitis aseptic [Unknown]
  - Cytokine release syndrome [Unknown]
  - Hepatotoxicity [Unknown]
  - Acute graft versus host disease in skin [Unknown]
  - Death [Fatal]

NARRATIVE: CASE EVENT DATE: 20170622
